FAERS Safety Report 6849574-1 (Version None)
Quarter: 2010Q3

REPORT INFORMATION
  Report Type: 
  Country: None (occurrence: None)
  Receive Date: 20100716
  Receipt Date: 20100707
  Transmission Date: 20110219
  Serious: Yes (Hospitalization)
  Sender: FDA-Public Use
  Company Number: US-ABBOTT-10P-163-0656089-00

PATIENT
  Sex: Male
  Weight: 83.99 kg

DRUGS (27)
  1. HUMIRA [Suspect]
     Indication: CROHN'S DISEASE
     Dates: start: 20080101
  2. PREDNISONE [Concomitant]
     Indication: PRODUCT USED FOR UNKNOWN INDICATION
  3. PREDNISONE [Concomitant]
  4. METHOTREXATE [Concomitant]
     Indication: PRODUCT USED FOR UNKNOWN INDICATION
     Route: 048
  5. TRAMADOL [Concomitant]
     Indication: BACK PAIN
  6. ATENOLOL [Concomitant]
     Indication: BLOOD PRESSURE
  7. ZERTEC [Concomitant]
     Indication: HYPERSENSITIVITY
  8. LORAZEPAM [Concomitant]
     Indication: ANXIETY
  9. ZOFRAN [Concomitant]
     Indication: NAUSEA
  10. POTASSIUM CHLORIDE [Concomitant]
     Indication: PRODUCT USED FOR UNKNOWN INDICATION
  11. LISINOPRIL [Concomitant]
     Indication: CARDIAC DISORDER
  12. CALCIUM +D [Concomitant]
     Indication: PRODUCT USED FOR UNKNOWN INDICATION
  13. ACIDOPHILUS [Concomitant]
     Indication: PRODUCT USED FOR UNKNOWN INDICATION
  14. FLORAGEN OTC [Concomitant]
     Indication: PRODUCT USED FOR UNKNOWN INDICATION
  15. M.V.I. [Concomitant]
     Indication: PRODUCT USED FOR UNKNOWN INDICATION
  16. BENAFIBER [Concomitant]
     Indication: GASTROINTESTINAL DISORDER
  17. MIRALAX [Concomitant]
     Indication: PRODUCT USED FOR UNKNOWN INDICATION
  18. PANTAPRAZOLE [Concomitant]
     Indication: PRODUCT USED FOR UNKNOWN INDICATION
  19. QUESTRAN [Concomitant]
     Indication: PRODUCT USED FOR UNKNOWN INDICATION
  20. TYLENOL [Concomitant]
     Indication: PRODUCT USED FOR UNKNOWN INDICATION
  21. FOLIC ACID [Concomitant]
     Indication: PRODUCT USED FOR UNKNOWN INDICATION
  22. FLOMAX [Concomitant]
     Indication: PRODUCT USED FOR UNKNOWN INDICATION
     Dosage: 1
  23. LYSINE [Concomitant]
     Indication: PRODUCT USED FOR UNKNOWN INDICATION
  24. NASONEX [Concomitant]
     Indication: PRODUCT USED FOR UNKNOWN INDICATION
  25. ALBUTEROL [Concomitant]
     Indication: PRODUCT USED FOR UNKNOWN INDICATION
     Dosage: NEBULIZER, AS NEEDED
  26. ALBUTEROL [Concomitant]
  27. LOVAZA [Concomitant]
     Indication: PRODUCT USED FOR UNKNOWN INDICATION

REACTIONS (6)
  - BACK PAIN [None]
  - COMPRESSION FRACTURE [None]
  - H1N1 INFLUENZA [None]
  - OEDEMA PERIPHERAL [None]
  - PNEUMONIA [None]
  - PYREXIA [None]
